FAERS Safety Report 7969472-X (Version None)
Quarter: 2011Q4

REPORT INFORMATION
  Report Type: 
  Country: None (occurrence: None)
  Receive Date: 20111212
  Receipt Date: 20111129
  Transmission Date: 20120403
  Serious: Yes (Hospitalization, Other)
  Sender: FDA-Public Use
  Company Number: US-BIOGENIDEC-2011BI036354

PATIENT
  Sex: Female

DRUGS (16)
  1. CYMBALTA [Concomitant]
     Route: 048
  2. BENTYL [Concomitant]
     Route: 048
  3. RAZADYNE [Concomitant]
     Route: 048
  4. GALANTAMINE HYDROBROMIDE [Concomitant]
     Route: 048
  5. DIAZEPAM [Concomitant]
     Indication: MUSCLE SPASMS
  6. PREMARIN [Concomitant]
     Route: 048
  7. VITAMIN D [Concomitant]
     Route: 048
  8. CLONAZEPAM [Concomitant]
  9. LOMOTIL [Concomitant]
     Route: 048
  10. OXYCODONE HCL [Concomitant]
     Route: 048
  11. CENTRUM [Concomitant]
     Route: 048
  12. AVONEX [Suspect]
     Indication: MULTIPLE SCLEROSIS
     Route: 030
     Dates: start: 19990901
  13. FENTANYL-100 [Concomitant]
     Route: 062
  14. AMANTADINE HCL [Concomitant]
  15. LEVOTHYROXINE SODIUM [Concomitant]
     Route: 048
  16. HYDROXYZINE [Concomitant]
     Indication: PRURITUS
     Route: 048

REACTIONS (8)
  - SPINAL NERVE STIMULATOR IMPLANTATION [None]
  - INCONTINENCE [None]
  - PAIN OF SKIN [None]
  - FEELING ABNORMAL [None]
  - PAIN [None]
  - INTESTINAL OBSTRUCTION [None]
  - GASTRIC DISORDER [None]
  - OVERDOSE [None]
